FAERS Safety Report 4492456-3 (Version None)
Quarter: 2004Q4

REPORT INFORMATION
  Report Type: 
  Country: None (occurrence: None)
  Receive Date: 20041029
  Receipt Date: 20041019
  Transmission Date: 20050328
  Serious: Yes (Hospitalization, Disabling, Other)
  Sender: FDA-Public Use
  Company Number: 2004081691

PATIENT
  Age: 63 Year
  Sex: Female

DRUGS (1)
  1. ATORVASTATIN (ATORVASTATIN) [Suspect]
     Indication: ILL-DEFINED DISORDER
     Dosage: ORAL
     Route: 048
     Dates: start: 20020101, end: 20040701

REACTIONS (12)
  - ACTIVITIES OF DAILY LIVING IMPAIRED [None]
  - BLOOD CREATINE PHOSPHOKINASE INCREASED [None]
  - COUGH DECREASED [None]
  - DYSPHAGIA [None]
  - DYSSTASIA [None]
  - IMMOBILE [None]
  - MUSCLE INJURY [None]
  - MUSCULOSKELETAL STIFFNESS [None]
  - PAIN IN EXTREMITY [None]
  - THYROID DISORDER [None]
  - VIRAL INFECTION [None]
  - WHEELCHAIR USER [None]
